FAERS Safety Report 4342300-X (Version None)
Quarter: 2004Q2

REPORT INFORMATION
  Report Type: 
  Country: None (occurrence: None)
  Receive Date: 20040420
  Receipt Date: 20040420
  Transmission Date: 20050107
  Serious: Yes (Life-Threatening)
  Sender: FDA-Public Use
  Company Number: None

PATIENT
  Age: 29 Year
  Sex: Female
  Weight: 63.5036 kg

DRUGS (2)
  1. LEXAPRO [Suspect]
     Indication: SOCIAL PHOBIA
     Dosage: 10 MGS 1 X DAILY ORAL
     Route: 048
     Dates: start: 19961031, end: 20031020
  2. LEXAPRO [Suspect]
     Dosage: 05 MGS 1 X DAILY ORAL
     Route: 048

REACTIONS (5)
  - ANXIETY [None]
  - CONVERSION DISORDER [None]
  - IMPAIRED WORK ABILITY [None]
  - SUICIDAL IDEATION [None]
  - YAWNING [None]
